FAERS Safety Report 8400431-9 (Version None)
Quarter: 2012Q2

REPORT INFORMATION
  Report Type: 
  Country: None (occurrence: None)
  Receive Date: 20120531
  Receipt Date: 20120515
  Transmission Date: 20120825
  Serious: Yes (Other)
  Sender: FDA-Public Use
  Company Number: DE-B.I. PHARMACEUTICALS,INC./RIDGEFIELD-2012-DE-00627DE

PATIENT
  Sex: Female
  Weight: 70 kg

DRUGS (9)
  1. RAMIPRIL [Concomitant]
     Indication: HYPERTENSION
  2. DONA [Concomitant]
     Dosage: 250 MG
  3. GLIMEPIRID [Concomitant]
     Indication: DIABETES MELLITUS
  4. CARVEDILOL [Concomitant]
  5. GLUCOPHAGE [Concomitant]
     Indication: DIABETES MELLITUS
     Dosage: 1000 MG
  6. TORSEMIDE [Concomitant]
     Indication: HYPERTENSION
  7. DIGIMERK [Concomitant]
  8. PRADAXA [Suspect]
     Indication: ATRIAL FIBRILLATION
     Dosage: 150 MG
     Route: 048
  9. NORVASC [Concomitant]
     Indication: HYPERTENSION

REACTIONS (2)
  - INSOMNIA [None]
  - HYPERTENSIVE CRISIS [None]
